FAERS Safety Report 20393280 (Version 2)
Quarter: 2022Q1

REPORT INFORMATION
  Report Type: Spontaneous
  Country: US (occurrence: US)
  Receive Date: 20220128
  Receipt Date: 20220215
  Transmission Date: 20220423
  Serious: Yes (Death, Life-Threatening, Hospitalization, Other)
  Sender: FDA-Public Use
  Company Number: US-TEVA-2022-US-2001121

PATIENT
  Age: 6 Decade
  Sex: Male

DRUGS (10)
  1. PREDNISONE [Suspect]
     Active Substance: PREDNISONE
     Indication: Polyarteritis nodosa
     Dosage: 20-30MG
     Route: 065
  2. PREDNISONE [Suspect]
     Active Substance: PREDNISONE
     Dosage: 50 MILLIGRAM DAILY;
     Route: 065
     Dates: start: 2020, end: 2021
  3. DEXAMETHASONE [Suspect]
     Active Substance: DEXAMETHASONE
     Indication: Haemophagocytic lymphohistiocytosis
     Dosage: 10 MG/M2 DAILY;
     Route: 065
     Dates: start: 2021
  4. METHOTREXATE [Suspect]
     Active Substance: METHOTREXATE
     Indication: Polyarteritis nodosa
     Route: 048
     Dates: start: 2020
  5. METHYLPREDNISOLONE [Suspect]
     Active Substance: METHYLPREDNISOLONE
     Indication: Premedication
     Route: 065
     Dates: start: 2021
  6. INFLIXIMAB [Suspect]
     Active Substance: INFLIXIMAB
     Indication: Polyarteritis nodosa
     Route: 050
     Dates: start: 2020
  7. ANAKINRA [Suspect]
     Active Substance: ANAKINRA
     Indication: Haemophagocytic lymphohistiocytosis
     Dosage: 4.5 MG/KG DAILY;
     Route: 065
     Dates: start: 2021, end: 2021
  8. RITUXIMAB [Suspect]
     Active Substance: RITUXIMAB
     Indication: Haemophagocytic lymphohistiocytosis
     Route: 065
     Dates: start: 2021
  9. RUXOLITINIB [Suspect]
     Active Substance: RUXOLITINIB
     Indication: Haemophagocytic lymphohistiocytosis
     Dosage: 30 MILLIGRAM DAILY;
     Route: 065
     Dates: start: 2021
  10. AMPICILLIN [Concomitant]
     Active Substance: AMPICILLIN
     Indication: Antibiotic therapy
     Route: 065
     Dates: start: 2021

REACTIONS (16)
  - Pseudomonas infection [Fatal]
  - Pseudomonal bacteraemia [Fatal]
  - Septic shock [Fatal]
  - Cardiac arrest [Fatal]
  - Pulseless electrical activity [Fatal]
  - Cardiac arrest [Fatal]
  - Pseudomonal sepsis [Fatal]
  - Acute respiratory failure [Unknown]
  - Renal infarct [Unknown]
  - Epstein-Barr virus infection reactivation [Recovering/Resolving]
  - Haemophagocytic lymphohistiocytosis [Recovering/Resolving]
  - Myopathy [Unknown]
  - Glaucoma [Unknown]
  - Osteoporosis [Unknown]
  - Disseminated blastomycosis [Unknown]
  - Drug ineffective [Unknown]

NARRATIVE: CASE EVENT DATE: 20210101
